FAERS Safety Report 10358773 (Version 4)
Quarter: 2014Q4

REPORT INFORMATION
  Report Type: Spontaneous
  Country: GB (occurrence: GB)
  Receive Date: 20140804
  Receipt Date: 20141106
  Transmission Date: 20150528
  Serious: Yes (Other)
  Sender: FDA-Public Use
  Company Number: GB-BEH-2013035075

PATIENT
  Age: 25 Year
  Sex: Female

DRUGS (3)
  1. RHOPHYLAC [Suspect]
     Active Substance: HUMAN RHO(D) IMMUNE GLOBULIN
     Dosage: TWO DAYS POSTPARTUM. INFUSED OVER 20 MINUTES. START DATE: WITHIN LAST 3 MONTHS PRIOR TO 10-MAR-2013
     Route: 042
  2. D-GAM [Concomitant]
     Indication: RHESUS INCOMPATIBILITY
     Dosage: AT DELIVERY
  3. RHOPHYLAC [Suspect]
     Active Substance: HUMAN RHO(D) IMMUNE GLOBULIN
     Indication: FOETAL-MATERNAL HAEMORRHAGE
     Dosage: AT 28 WEEKS.
     Route: 030

REACTIONS (13)
  - Capillary permeability increased [Recovered/Resolved]
  - Type III immune complex mediated reaction [Recovered/Resolved]
  - Pulmonary vascular disorder [Recovered/Resolved]
  - Transfusion-related acute lung injury [Recovered/Resolved]
  - Tachycardia [Recovered/Resolved]
  - Anaphylactic reaction [Recovered/Resolved]
  - Drug hypersensitivity [Recovered/Resolved]
  - Complement factor increased [Recovered/Resolved]
  - Transfusion reaction [Recovered/Resolved]
  - Tremor [Recovered/Resolved]
  - Dyspnoea [Recovered/Resolved]
  - Hypoxia [Recovered/Resolved]
  - Blood pressure immeasurable [Recovered/Resolved]
